APPROVED DRUG PRODUCT: FLUOCINOLONE ACETONIDE
Active Ingredient: FLUOCINOLONE ACETONIDE
Strength: 0.025%
Dosage Form/Route: OINTMENT;TOPICAL
Application: A088742 | Product #001
Applicant: USL PHARMA INC
Approved: Feb 8, 1985 | RLD: No | RS: No | Type: DISCN